FAERS Safety Report 8496400-3 (Version None)
Quarter: 2012Q2

REPORT INFORMATION
  Report Type: 
  Country: None (occurrence: None)
  Receive Date: 20120405
  Receipt Date: 20091030
  Transmission Date: 20120825
  Serious: Yes (Hospitalization, Other)
  Sender: FDA-Public Use
  Company Number: PHEH2009US14798

PATIENT
  Age: 76 Year
  Sex: Female

DRUGS (4)
  1. CHOELSTEROL-AND TRIGLYCERIDE REDUCERS (NO INGREDIENTS/SUBSTANCES) [Concomitant]
  2. FISH OIL (FISH OIL) [Concomitant]
  3. CALCIUM WITH VITAMIN D (CALCIUM PHOSPHATE, CALCIUM SODIUM LACTATE, ERG [Concomitant]
  4. RECLAST (ZOLEDRONATE) SOLUTION FOR INJECTION [Suspect]
     Dosage: UNK, INFUSION
     Dates: start: 20090610

REACTIONS (2)
  - MYALGIA [None]
  - PAIN IN EXTREMITY [None]
